FAERS Safety Report 8074867-2 (Version None)
Quarter: 2012Q1

REPORT INFORMATION
  Report Type: 
  Country: None (occurrence: None)
  Receive Date: 20120126
  Receipt Date: 20120118
  Transmission Date: 20120608
  Serious: Yes (Hospitalization)
  Sender: FDA-Public Use
  Company Number: US-ASTRAZENECA-2011SE51235

PATIENT
  Age: 72 Year
  Sex: Female

DRUGS (1)
  1. PULMICORT [Suspect]
     Route: 055

REACTIONS (7)
  - BRONCHITIS [None]
  - DYSPNOEA [None]
  - INFECTION [None]
  - DRUG ADMINISTERED AT INAPPROPRIATE SITE [None]
  - CONDITION AGGRAVATED [None]
  - MALAISE [None]
  - CHRONIC OBSTRUCTIVE PULMONARY DISEASE [None]
